FAERS Safety Report 17288204 (Version 2)
Quarter: 2020Q3

REPORT INFORMATION
  Report Type: Spontaneous
  Country: US (occurrence: US)
  Receive Date: 20200120
  Receipt Date: 20200706
  Transmission Date: 20201102
  Serious: Yes (Other)
  Sender: FDA-Public Use
  Company Number: US-BAYER-2020-010267

PATIENT
  Age: 44 Year
  Sex: Male

DRUGS (6)
  1. INTERFERON BETA ? 1B [Suspect]
     Active Substance: INTERFERON BETA-1B
     Indication: PRODUCT USED FOR UNKNOWN INDICATION
     Dosage: UNK
     Route: 065
  2. VITAMIN D3 [Concomitant]
     Active Substance: CHOLECALCIFEROL
     Dosage: 200IU
  3. SYNTHROID [Concomitant]
     Active Substance: LEVOTHYROXINE SODIUM
     Dosage: 100 UG
  4. TECFIDERA [Suspect]
     Active Substance: DIMETHYL FUMARATE
     Indication: MULTIPLE SCLEROSIS
     Dosage: UNK
     Route: 065
     Dates: start: 201910
  5. AUBAGIO [Suspect]
     Active Substance: TERIFLUNOMIDE
     Indication: MULTIPLE SCLEROSIS
     Dosage: UNK
     Route: 065
     Dates: start: 201710, end: 201810
  6. BETASERON [Suspect]
     Active Substance: INTERFERON BETA-1B
     Indication: MULTIPLE SCLEROSIS
     Dosage: UNK
     Route: 065
     Dates: end: 2017

REACTIONS (16)
  - Lymphopenia [None]
  - Aspartate aminotransferase increased [None]
  - B-lymphocyte count decreased [None]
  - JC polyomavirus test positive [None]
  - Differential white blood cell count abnormal [None]
  - Aphasia [None]
  - Leukopenia [None]
  - Platelet count decreased [None]
  - Liver function test abnormal [None]
  - T-lymphocyte count abnormal [None]
  - CD4 lymphocytes decreased [None]
  - Nasopharyngitis [None]
  - Full blood count abnormal [None]
  - Alanine aminotransferase increased [None]
  - CD8 lymphocytes decreased [None]
  - Balance disorder [None]
